FAERS Safety Report 6965481-8 (Version None)
Quarter: 2010Q3

REPORT INFORMATION
  Report Type: 
  Country: None (occurrence: None)
  Receive Date: 20100903
  Receipt Date: 20100208
  Transmission Date: 20110219
  Serious: Yes (Hospitalization)
  Sender: FDA-Public Use
  Company Number: B0672542A

PATIENT
  Sex: Female

DRUGS (6)
  1. ATARAX [Suspect]
     Indication: PRODUCT USED FOR UNKNOWN INDICATION
     Dosage: 25MG PER DAY
     Route: 048
     Dates: start: 20091223, end: 20100103
  2. TRIFLUCAN [Suspect]
     Indication: PRODUCT USED FOR UNKNOWN INDICATION
     Dosage: 50MG PER DAY
     Route: 048
     Dates: start: 20091223, end: 20100103
  3. TOLEXINE [Suspect]
     Indication: PRODUCT USED FOR UNKNOWN INDICATION
     Dosage: 1TAB PER DAY
     Route: 048
     Dates: start: 20100102, end: 20100103
  4. ZELITREX [Suspect]
     Route: 048
     Dates: start: 20091223, end: 20100103
  5. LACTOBACILLUS [Concomitant]
  6. POVIDONE IODINE [Concomitant]

REACTIONS (1)
  - STEVENS-JOHNSON SYNDROME [None]
